FAERS Safety Report 24400674 (Version 1)
Quarter: 2024Q4

REPORT INFORMATION
  Report Type: Spontaneous
  Country: RU (occurrence: RU)
  Receive Date: 20241006
  Receipt Date: 20241006
  Transmission Date: 20250114
  Serious: Yes (Other)
  Sender: DR REDDYS
  Company Number: RU-RZN-SPO/RUS/24/0014467

PATIENT
  Age: 55 Year
  Sex: Female

DRUGS (2)
  1. OMEPRAZOLE [Suspect]
     Active Substance: OMEPRAZOLE
     Indication: Peptic ulcer
     Dosage: FREQUENCY OF THE DRUG USAGE: ONE DOSE ONE TABLET, FORMULATION: ENTERIC COATED CAPSULES
     Route: 048
     Dates: start: 200209, end: 200209
  2. OMEPRAZOLE [Suspect]
     Active Substance: OMEPRAZOLE
     Dosage: FREQUENCY OF THE DRUG USAGE: ONE DOSE ONE TABLET, FORMULATION: ENTERIC COATED CAPSULES
     Route: 048
     Dates: start: 200211, end: 200211

REACTIONS (2)
  - Haematuria [Recovered/Resolved]
  - Renal colic [Recovered/Resolved]

NARRATIVE: CASE EVENT DATE: 20021101
